FAERS Safety Report 7487877-0 (Version None)
Quarter: 2011Q2

REPORT INFORMATION
  Report Type: 
  Country: None (occurrence: None)
  Receive Date: 20110518
  Receipt Date: 20110509
  Transmission Date: 20111010
  Serious: Yes (Hospitalization)
  Sender: FDA-Public Use
  Company Number: US-B.I. PHARMACEUTICALS,INC./RIDGEFIELD-2011-BP-08642BP

PATIENT
  Sex: Female

DRUGS (36)
  1. XOPENEX [Concomitant]
  2. SINGULAIR [Concomitant]
     Dosage: 10 MG
  3. PROMETHAZINE [Concomitant]
     Route: 048
  4. ACETAMINOPHEN [Concomitant]
  5. KLOR-CON [Concomitant]
     Dosage: 40 MEQ
  6. CYMBALTA [Concomitant]
     Dosage: 30 MG
  7. REVATIO [Concomitant]
     Dosage: 60 MG
  8. CARAFATE [Concomitant]
     Route: 048
  9. AMITRIPTYLINE HCL [Concomitant]
     Dosage: 25 MG
  10. FENOFIBRATE (MICRONIZED) [Concomitant]
     Dosage: 54 MG
  11. MAGNESIUM OXIDE [Concomitant]
     Dosage: 800 MG
  12. OXYGEN [Concomitant]
  13. ZOCOR [Concomitant]
     Dosage: 2 PUF
     Route: 048
  14. ZANTAC 150 [Suspect]
     Dosage: 150 MG
     Route: 048
     Dates: start: 20110316, end: 20110316
  15. BENEZEPRIL [Concomitant]
     Dosage: 20 MG
  16. ROPINIROLE [Concomitant]
  17. LOTEMAX [Concomitant]
  18. PHENERGAN HCL [Concomitant]
     Indication: VOMITING
  19. PROTONIX [Concomitant]
     Dosage: 80 MG
  20. SPIRIVA [Concomitant]
     Dosage: 18 MCG
  21. MUCINEX DM [Concomitant]
  22. ONDANSERTRON HYDROCHLORIDE [Concomitant]
     Dosage: 16 MG
  23. LEVOTHYROIXINE [Concomitant]
     Dosage: 175 MCG
  24. PANTOPRAZOLE [Concomitant]
  25. SYMBICORT [Concomitant]
     Dosage: 2 PUF
  26. SYSTANE [Concomitant]
  27. FLUTICOSONE [Concomitant]
  28. PHENERGAN HCL [Concomitant]
     Indication: NAUSEA
     Route: 048
  29. LASIX [Concomitant]
     Dosage: 80 MG
     Route: 048
  30. OXYBUTYNIN [Concomitant]
     Dosage: 5 MG
     Route: 048
  31. OMEPRAZOLE CR [Concomitant]
     Dosage: 40 MG
     Route: 048
  32. ULTRAM [Concomitant]
  33. 1 A DAY VITAMIN [Concomitant]
  34. MECLIZINE [Concomitant]
     Dosage: 37.5 MG
  35. MIRAPEX [Concomitant]
     Dosage: 0.5 MG
     Route: 048
  36. REQUIP [Concomitant]
     Dosage: 0.5 MG
     Route: 048

REACTIONS (4)
  - PAIN IN EXTREMITY [None]
  - ABDOMINAL PAIN UPPER [None]
  - CHEST PAIN [None]
  - BURNING SENSATION [None]
